FAERS Safety Report 4754184-6 (Version None)
Quarter: 2005Q3

REPORT INFORMATION
  Report Type: 
  Country: None (occurrence: None)
  Receive Date: 20050824
  Receipt Date: 20050706
  Transmission Date: 20060218
  Serious: Yes (Hospitalization)
  Sender: FDA-Public Use
  Company Number: K200500918

PATIENT
  Age: 11 Year
  Sex: Female
  Weight: 38.3 kg

DRUGS (1)
  1. PENICILLIN G PROCAINE [Suspect]
     Indication: PHARYNGITIS STREPTOCOCCAL
     Dosage: SINGLE, INTRAMUSCULAR
     Route: 030
     Dates: start: 20050225, end: 20050225

REACTIONS (8)
  - BACK PAIN [None]
  - DIFFICULTY IN WALKING [None]
  - HAEMOPTYSIS [None]
  - HYPOAESTHESIA [None]
  - MYELITIS TRANSVERSE [None]
  - PARALYSIS [None]
  - SINUSITIS [None]
  - WEIGHT INCREASED [None]
